FAERS Safety Report 5866837-7 (Version None)
Quarter: 2008Q3

REPORT INFORMATION
  Report Type: 
  Country: None (occurrence: None)
  Receive Date: 20080828
  Receipt Date: 20080828
  Transmission Date: 20090109
  Serious: Yes (Hospitalization)
  Sender: FDA-Public Use
  Company Number: None

PATIENT
  Sex: Female
  Weight: 102.9665 kg

DRUGS (2)
  1. HUMIRA [Suspect]
     Indication: ARTHRITIS
     Dosage: 40 MG Q 2 WKS SC
     Route: 058
     Dates: start: 20070101, end: 20071001
  2. METHOTREXATE [Suspect]
     Indication: ARTHRITIS
     Dosage: 2.5 MG 6 PO WEEKLY
     Route: 048
     Dates: start: 20070901, end: 20071001

REACTIONS (2)
  - LONG QT SYNDROME [None]
  - SYNCOPE [None]
